FAERS Safety Report 24012628 (Version 2)
Quarter: 2024Q3

REPORT INFORMATION
  Report Type: Spontaneous
  Country: JP (occurrence: JP)
  Receive Date: 20240626
  Receipt Date: 20240917
  Transmission Date: 20241016
  Serious: Yes (Hospitalization)
  Sender: GLAXOSMITHKLINE
  Company Number: JP-GSKJP-JP2024JPN075974AA

PATIENT

DRUGS (1)
  1. DAPRODUSTAT [Suspect]
     Active Substance: DAPRODUSTAT
     Indication: Nephrogenic anaemia
     Dosage: 8 MG
     Route: 048
     Dates: start: 20240502

REACTIONS (4)
  - Hospitalisation [Unknown]
  - Blood calcium increased [Unknown]
  - Haemoglobin decreased [Unknown]
  - Product use issue [Unknown]
